FAERS Safety Report 6849739-9 (Version None)
Quarter: 2010Q3

REPORT INFORMATION
  Report Type: 
  Country: None (occurrence: None)
  Receive Date: 20100716
  Receipt Date: 20071004
  Transmission Date: 20110219
  Serious: No
  Sender: FDA-Public Use
  Company Number: US-PFIZER INC-2007084212

PATIENT
  Sex: Male
  Weight: 93.2 kg

DRUGS (1)
  1. CHANTIX [Suspect]
     Indication: SMOKING CESSATION THERAPY
     Dates: start: 20070918

REACTIONS (4)
  - CONSTIPATION [None]
  - FATIGUE [None]
  - FLATULENCE [None]
  - INSOMNIA [None]
